FAERS Safety Report 14999836 (Version 20)
Quarter: 2020Q1

REPORT INFORMATION
  Report Type: Report from Study
  Country: CA (occurrence: CA)
  Receive Date: 20180612
  Receipt Date: 20200323
  Transmission Date: 20200409
  Serious: Yes (Hospitalization, Other)
  Sender: FDA-Public Use
  Company Number: PHHY2017CA117209

PATIENT
  Age: 55 Year
  Sex: Female

DRUGS (3)
  1. SANDOSTATIN LAR DEPOT [Suspect]
     Active Substance: OCTREOTIDE ACETATE
     Indication: CARCINOID TUMOUR
     Dosage: 20 MG, QMO
     Route: 030
     Dates: start: 20170804
  2. SANDOSTATIN LAR DEPOT [Suspect]
     Active Substance: OCTREOTIDE ACETATE
     Dosage: 40 MG, QMO (EVERY 4 WEEKS)
     Route: 030
     Dates: end: 20180801
  3. MAGNESIUM [Concomitant]
     Active Substance: MAGNESIUM
     Indication: PRODUCT USED FOR UNKNOWN INDICATION
     Dosage: 250 MG, BID
     Route: 048

REACTIONS (24)
  - Abdominal hernia [Unknown]
  - Muscular weakness [Unknown]
  - Dyspnoea [Recovering/Resolving]
  - Frequent bowel movements [Unknown]
  - Wheezing [Recovering/Resolving]
  - Cough [Not Recovered/Not Resolved]
  - Fall [Unknown]
  - Pyrexia [Unknown]
  - Abdominal pain [Unknown]
  - Blood pressure increased [Unknown]
  - Hypotension [Unknown]
  - Syncope [Unknown]
  - Bronchial injury [Unknown]
  - Inflammation [Recovering/Resolving]
  - Dysphonia [Unknown]
  - Injection site reaction [Unknown]
  - Malignant neoplasm progression [Unknown]
  - Adenoma benign [Unknown]
  - Ascites [Unknown]
  - Pulmonary embolism [Unknown]
  - Carcinoid tumour [Unknown]
  - Hypercalcaemia [Unknown]
  - Peritonitis [Unknown]
  - Dizziness [Unknown]

NARRATIVE: CASE EVENT DATE: 2017
